FAERS Safety Report 8333647-0 (Version None)
Quarter: 2012Q2

REPORT INFORMATION
  Report Type: 
  Country: None (occurrence: None)
  Receive Date: 20120503
  Receipt Date: 20120426
  Transmission Date: 20120825
  Serious: Yes (Other)
  Sender: FDA-Public Use
  Company Number: GB-BAYER-201039841GPV

PATIENT
  Age: 65 Year
  Sex: Female

DRUGS (1)
  1. BETASERON [Suspect]
     Indication: MULTIPLE SCLEROSIS
     Dosage: UNK UNK, QOD
     Route: 058
     Dates: end: 20110401

REACTIONS (10)
  - BLADDER DISORDER [None]
  - SKIN REACTION [None]
  - SUBCUTANEOUS ABSCESS [None]
  - ABDOMINAL MASS [None]
  - FATIGUE [None]
  - DEPRESSED MOOD [None]
  - INFLUENZA LIKE ILLNESS [None]
  - CELLULITIS [None]
  - PAIN [None]
  - SOFT TISSUE INJURY [None]
